FAERS Safety Report 17576408 (Version 1)
Quarter: 2020Q1

REPORT INFORMATION
  Report Type: Spontaneous
  Country: US (occurrence: US)
  Receive Date: 20200319
  Receipt Date: 20200319
  Transmission Date: 20200409
  Serious: Yes (Hospitalization)
  Sender: FDA-Public Use
  Company Number: None

PATIENT
  Sex: Male
  Weight: 79.5 kg

DRUGS (3)
  1. GEMCITABINE HYDROCHLORIDE. [Concomitant]
     Active Substance: GEMCITABINE HYDROCHLORIDE
     Dates: end: 20200303
  2. CISPLATIN (119875) [Suspect]
     Active Substance: CISPLATIN
     Dates: end: 20200304
  3. NEULASTA [Concomitant]
     Active Substance: PEGFILGRASTIM
     Dates: end: 20200305

REACTIONS (1)
  - Fall [None]

NARRATIVE: CASE EVENT DATE: 20200309
